FAERS Safety Report 21675981 (Version 2)
Quarter: 2022Q4

REPORT INFORMATION
  Report Type: Spontaneous
  Country: US (occurrence: US)
  Receive Date: 20221202
  Receipt Date: 20221207
  Transmission Date: 20230113
  Serious: Yes (Other)
  Sender: FDA-Public Use
  Company Number: US-NOVOPROD-924188

PATIENT
  Age: 49 Year
  Sex: Female

DRUGS (2)
  1. NOVOLIN N [Suspect]
     Active Substance: INSULIN HUMAN
     Indication: Type 1 diabetes mellitus
     Dosage: 10 UNITS
     Route: 058
  2. NOVOLIN R [Suspect]
     Active Substance: INSULIN HUMAN
     Indication: Type 1 diabetes mellitus
     Dosage: UNK
     Route: 058

REACTIONS (1)
  - Blood glucose increased [Not Recovered/Not Resolved]

NARRATIVE: CASE EVENT DATE: 20220525
